FAERS Safety Report 5945053-4 (Version None)
Quarter: 2008Q4

REPORT INFORMATION
  Report Type: 
  Country: None (occurrence: None)
  Receive Date: 20081105
  Receipt Date: 20081020
  Transmission Date: 20090506
  Serious: Yes (Hospitalization)
  Sender: FDA-Public Use
  Company Number: 8038587

PATIENT
  Age: 70 Year
  Sex: Female

DRUGS (6)
  1. PREDNISOLONE [Suspect]
     Indication: INFLAMMATORY BOWEL DISEASE
     Dosage: 10 MG /D;
     Dates: start: 19960101, end: 20070501
  2. PREDNISOLONE [Suspect]
     Indication: INFLAMMATORY BOWEL DISEASE
     Dosage: 30 MG /D; PO
     Route: 048
     Dates: start: 20070501, end: 20071201
  3. PREDNISOLONE [Suspect]
     Indication: INFLAMMATORY BOWEL DISEASE
     Dosage: 10 MG /D;
     Dates: start: 20071201
  4. MESALAMINE [Suspect]
     Indication: INFLAMMATORY BOWEL DISEASE
     Dates: start: 19960101
  5. INFLIXIMAB [Suspect]
     Indication: INFLAMMATION
     Dosage: 5 MG/KG ONCE
     Dates: start: 20070201, end: 20070201
  6. INFLIXIMAB [Suspect]
     Indication: INFLAMMATION
     Dosage: 5 MG/KG ONCE
     Dates: start: 20070215, end: 20070215

REACTIONS (3)
  - GLOMERULONEPHRITIS [None]
  - RENAL AMYLOIDOSIS [None]
  - VASCULITIS [None]
